FAERS Safety Report 8073842-1 (Version None)
Quarter: 2012Q1

REPORT INFORMATION
  Report Type: 
  Country: None (occurrence: None)
  Receive Date: 20120126
  Receipt Date: 20120120
  Transmission Date: 20120608
  Serious: Yes (Death, Hospitalization)
  Sender: FDA-Public Use
  Company Number: US-CELGENEUS-163-21880-11080042

PATIENT
  Sex: Male

DRUGS (35)
  1. REVLIMID [Suspect]
     Dosage: 10 MILLIGRAM
     Route: 048
     Dates: start: 20110712, end: 20110718
  2. SINGULAIR [Concomitant]
     Indication: COUGH
     Dosage: 10 MILLIGRAM
     Route: 048
  3. LEVAQUIN [Concomitant]
     Indication: FATIGUE
  4. LEVAQUIN [Concomitant]
  5. ARMODAFINIL [Concomitant]
     Indication: FUNGAL INFECTION
     Route: 041
  6. ONDANSETRON HCL [Concomitant]
     Indication: NAUSEA
     Dosage: 8 MILLIGRAM
     Route: 048
  7. MAGIC MOUTHWASH [Concomitant]
     Dosage: 10 MILLILITER
     Route: 048
  8. DEXAMETHASONE [Concomitant]
     Route: 065
  9. RED BLOOD CELLS [Concomitant]
     Route: 065
  10. CARDIZEM [Concomitant]
     Route: 041
  11. ACETAMINOPHEN [Concomitant]
     Dosage: 650 MILLIGRAM
     Route: 048
  12. COUMADIN [Concomitant]
     Route: 048
  13. METOPROLOL TARTRATE [Concomitant]
     Route: 065
  14. NEUPOGEN [Concomitant]
     Indication: NEUTROPENIA
     Route: 065
  15. MULTI-VITAMINS [Concomitant]
     Dosage: 1
     Route: 048
  16. MILK OF MAGNESIA TAB [Concomitant]
     Indication: CONSTIPATION
     Dosage: 30 MILLILITER
     Route: 048
  17. SINGULAIR [Concomitant]
  18. AMBIEN [Concomitant]
     Indication: INSOMNIA
     Dosage: 10 MILLIGRAM
     Route: 048
  19. MIRALAX [Concomitant]
     Indication: CONSTIPATION
     Dosage: 17 GRAM
     Route: 048
  20. REVLIMID [Suspect]
     Indication: MANTLE CELL LYMPHOMA
     Dosage: 25 MILLIGRAM
     Route: 048
     Dates: start: 20110516, end: 20110525
  21. ZOCOR [Concomitant]
     Route: 065
  22. XANAX [Concomitant]
     Indication: ANXIETY
     Dosage: .5 MILLIGRAM
     Route: 048
  23. ARMODAFINIL [Concomitant]
     Dosage: 200 MILLIGRAM
     Route: 048
  24. DOCUSATE SODIUM [Concomitant]
     Dosage: 100 MILLIGRAM
     Route: 048
  25. TESILON PERLE [Concomitant]
     Indication: COUGH
     Dosage: 100 MILLIGRAM
     Route: 048
  26. CLOTRIMAZOLE [Concomitant]
     Dosage: 10 MILLIGRAM
     Route: 065
  27. CLOTRIMAZOLE [Concomitant]
  28. CITALOPRAM HYDROBROMIDE [Concomitant]
     Dosage: 20 MILLIGRAM
     Route: 048
  29. AMIDARONE [Concomitant]
     Route: 065
  30. ATIVAN [Concomitant]
     Route: 065
  31. MAGNESIUM [Concomitant]
     Dosage: 250 MILLIGRAM
     Route: 048
  32. MORPHINE [Concomitant]
     Route: 041
  33. LEVAQUIN [Concomitant]
     Indication: NAUSEA
     Route: 065
  34. ACETAMINOPHEN [Concomitant]
     Indication: PAIN
  35. POTASSIUM CHLORIDE [Concomitant]
     Dosage: 20 MILLIEQUIVALENTS
     Route: 048

REACTIONS (13)
  - FATIGUE [None]
  - STOMATITIS [None]
  - SYNCOPE [None]
  - HYPOTENSION [None]
  - PANCYTOPENIA [None]
  - HYPOKALAEMIA [None]
  - NEUTROPENIC SEPSIS [None]
  - NAUSEA [None]
  - ATRIAL FIBRILLATION [None]
  - MANTLE CELL LYMPHOMA [None]
  - FUNGAEMIA [None]
  - NEOPLASM PROGRESSION [None]
  - CANDIDIASIS [None]
